FAERS Safety Report 5247193-4 (Version None)
Quarter: 2007Q1

REPORT INFORMATION
  Report Type: 
  Country: None (occurrence: None)
  Receive Date: 20070221
  Receipt Date: 20070206
  Transmission Date: 20070707
  Serious: Yes (Hospitalization)
  Sender: FDA-Public Use
  Company Number: US-CVT-062270

PATIENT
  Age: 86 Year
  Sex: Male
  Weight: 63.5 kg

DRUGS (8)
  1. RANEXA [Suspect]
     Indication: ANGINA PECTORIS
     Dosage: ORAL
     Route: 048
     Dates: start: 20060801, end: 20061106
  2. PLAVIX [Suspect]
     Dosage: ORAL
     Route: 048
     Dates: end: 20061107
  3. FOLGARD/01079901/ (CYANOCOBALAMIN, FOLIC ACID, PYRIDOXINE HYDROCHLORID [Concomitant]
  4. IMDUR [Concomitant]
  5. ALTACE [Concomitant]
  6. TOPROL-XL [Concomitant]
  7. LIPITOR/01326101/(ATORVASTATIN) [Concomitant]
  8. DIGOXIN/00017701/ (DIGOXIN) [Concomitant]

REACTIONS (10)
  - BLOOD BLISTER [None]
  - EOSINOPHILIA [None]
  - HAEMATOCRIT DECREASED [None]
  - HAEMOGLOBIN DECREASED [None]
  - IDIOPATHIC THROMBOCYTOPENIC PURPURA [None]
  - IMMUNE SYSTEM DISORDER [None]
  - MEAN CELL VOLUME INCREASED [None]
  - MOUTH HAEMORRHAGE [None]
  - RASH [None]
  - THROMBOCYTOPENIA [None]
